FAERS Safety Report 4877056-5 (Version None)
Quarter: 2005Q4

REPORT INFORMATION
  Report Type: 
  Country: None (occurrence: None)
  Receive Date: 20051206
  Receipt Date: 20050817
  Transmission Date: 20060501
  Serious: No
  Sender: FDA-Public Use
  Company Number: USA0508105705

PATIENT
  Age: 62 Year
  Sex: Male

DRUGS (7)
  1. CYMBALTA [Suspect]
     Indication: BACK PAIN
     Dosage: 60 MG DAY
     Dates: start: 20050101
  2. SYNTHROID [Concomitant]
  3. LISINOPRIL [Concomitant]
  4. ASPIRIN [Concomitant]
  5. RANITIDINE [Concomitant]
  6. LIPITOR [Concomitant]
  7. NIASPAN [Concomitant]

REACTIONS (1)
  - HYPERSOMNIA [None]
